FAERS Safety Report 8973888 (Version 2)
Quarter: 2013Q4

REPORT INFORMATION
  Report Type: Spontaneous
  Country: CA (occurrence: CA)
  Receive Date: 20121218
  Receipt Date: 20131024
  Transmission Date: 20140711
  Serious: Yes (Hospitalization)
  Sender: FDA-Public Use
  Company Number: CA-GLAXOSMITHKLINE-A1005262A

PATIENT
  Age: 51 Year
  Sex: Female
  Weight: 54.5 kg

DRUGS (5)
  1. ADVAIR [Suspect]
     Indication: ASTHMA
     Dosage: 2PUFF AS REQUIRED
     Route: 055
     Dates: start: 2007
  2. CITALOPRAM [Concomitant]
  3. VENTOLIN [Concomitant]
  4. SPIRIVA [Concomitant]
  5. B12 [Concomitant]

REACTIONS (4)
  - Dyspnoea [Recovering/Resolving]
  - Immobile [Recovering/Resolving]
  - Spinal column stenosis [Not Recovered/Not Resolved]
  - Nasopharyngitis [Not Recovered/Not Resolved]
